FAERS Safety Report 4424744-0 (Version None)
Quarter: 2004Q3

REPORT INFORMATION
  Report Type: 
  Country: None (occurrence: None)
  Receive Date: 20040805
  Receipt Date: 20040727
  Transmission Date: 20050211
  Serious: Yes (Life-Threatening, Hospitalization)
  Sender: FDA-Public Use
  Company Number: 2004-04-0015

PATIENT
  Age: 53 Year
  Sex: Female
  Weight: 67 kg

DRUGS (2)
  1. DIPROFOS (BETAMETHASONE SODIUM PHOSPHATE/DIPROPIONAT INJECTABLE SUSPEN [Suspect]
     Indication: HYPERSENSITIVITY
     Dosage: 7 MG/2 ML INTRAMUSCULAR
     Route: 030
     Dates: start: 20031118, end: 20031118
  2. LEVOCETIRIZINE [Concomitant]

REACTIONS (1)
  - TOXIC SKIN ERUPTION [None]
